FAERS Safety Report 6521026-8 (Version None)
Quarter: 2009Q4

REPORT INFORMATION
  Report Type: 
  Country: None (occurrence: None)
  Receive Date: 20091229
  Receipt Date: 20091123
  Transmission Date: 20100525
  Serious: Yes (Hospitalization, Other)
  Sender: FDA-Public Use
  Company Number: TW-SANOFI-AVENTIS-2009SA010151

PATIENT
  Age: 37 Year
  Sex: Female

DRUGS (12)
  1. TAMOXIFEN CITRATE [Suspect]
     Indication: BREAST CANCER
     Dates: start: 20060101
  2. TAMOXIFEN CITRATE [Suspect]
     Indication: HORMONE THERAPY
     Dates: start: 20060101
  3. ZOLADEX [Suspect]
     Indication: BREAST CANCER
  4. ZOLADEX [Suspect]
     Indication: HORMONE THERAPY
  5. DOCETAXEL [Suspect]
     Indication: BREAST CANCER
     Dates: start: 20060101
  6. EPIRUBICIN [Suspect]
     Indication: BREAST CANCER
     Dates: start: 20060101
  7. ENDOXAN [Suspect]
     Indication: BREAST CANCER
     Dates: start: 20060101
  8. CEFAZOLIN [Concomitant]
     Dates: start: 20070301
  9. CEFAZOLIN [Concomitant]
     Dates: start: 20070501
  10. GENTAMICIN [Concomitant]
     Dates: start: 20070301
  11. GENTAMICIN [Concomitant]
     Dates: start: 20070501
  12. ORAL ANTIDIABETICS [Concomitant]
     Indication: DIABETES MELLITUS
     Route: 048
     Dates: start: 20070501

REACTIONS (13)
  - ABSCESS [None]
  - CELLULITIS [None]
  - DIABETES MELLITUS [None]
  - FEBRILE NEUTROPENIA [None]
  - INFECTION IN AN IMMUNOCOMPROMISED HOST [None]
  - OSTEOMYELITIS CHRONIC [None]
  - OSTEONECROSIS [None]
  - POSTOPERATIVE WOUND INFECTION [None]
  - SKIN GRAFT [None]
  - STAPHYLOCOCCAL BACTERAEMIA [None]
  - STAPHYLOCOCCAL OSTEOMYELITIS [None]
  - WOUND DEHISCENCE [None]
  - WOUND INFECTION [None]
